FAERS Safety Report 8148656-4 (Version None)
Quarter: 2012Q1

REPORT INFORMATION
  Report Type: 
  Country: None (occurrence: None)
  Receive Date: 20120218
  Receipt Date: 20110625
  Transmission Date: 20120608
  Serious: No
  Sender: FDA-Public Use
  Company Number: US-ALLERGAN-1108653US

PATIENT
  Age: 59 Year
  Sex: Female

DRUGS (1)
  1. BOTULINUM TOXIN TYPE A [Suspect]
     Indication: MUSCLE SPASMS
     Dosage: 100 UNITS, SINGLE
     Route: 030
     Dates: start: 20110609, end: 20110609

REACTIONS (6)
  - INFLUENZA LIKE ILLNESS [None]
  - DYSPNOEA EXERTIONAL [None]
  - TINNITUS [None]
  - HEADACHE [None]
  - DYSPHAGIA [None]
  - FATIGUE [None]
